FAERS Safety Report 6675624-1 (Version None)
Quarter: 2010Q2

REPORT INFORMATION
  Report Type: 
  Country: None (occurrence: None)
  Receive Date: 20100409
  Receipt Date: 20100330
  Transmission Date: 20101027
  Serious: Yes (Hospitalization)
  Sender: FDA-Public Use
  Company Number: SE-CELGENEUS-150-21880-10032681

PATIENT
  Sex: Female
  Weight: 63.8 kg

DRUGS (9)
  1. REVLIMID [Suspect]
     Indication: CHRONIC LYMPHOCYTIC LEUKAEMIA REFRACTORY
     Route: 048
     Dates: start: 20100324
  2. OMEPRAZOLE [Concomitant]
     Indication: PROPHYLAXIS
     Route: 065
     Dates: start: 20100329
  3. PREDNISOLON [Concomitant]
     Indication: PROPHYLAXIS
     Route: 065
     Dates: start: 20100324, end: 20100329
  4. PREDNISOLON [Concomitant]
     Route: 065
     Dates: start: 20100329
  5. ALLOPURINOL [Concomitant]
     Indication: PROPHYLAXIS
     Route: 065
     Dates: start: 20100321
  6. FILGRASTIM [Concomitant]
     Indication: DRUG USE FOR UNKNOWN INDICATION
     Route: 058
     Dates: start: 20100324
  7. IMMUNE GLOBULIN NOS [Concomitant]
     Route: 051
     Dates: start: 20091102
  8. MORFIN [Concomitant]
     Indication: PAIN
     Route: 051
     Dates: start: 20100329
  9. DEXTROPROPOXIFEN [Concomitant]
     Indication: PAIN
     Route: 065
     Dates: start: 20100327

REACTIONS (1)
  - TUMOUR FLARE [None]
